FAERS Safety Report 13167261 (Version 4)
Quarter: 2017Q1

REPORT INFORMATION
  Report Type: Spontaneous
  Country: SG (occurrence: SG)
  Receive Date: 20170131
  Receipt Date: 20170202
  Transmission Date: 20170428
  Serious: Yes (Other)
  Sender: FDA-Public Use
  Company Number: ALCN2017SG000799

PATIENT
  Age: 32 Year
  Sex: Male

DRUGS (11)
  1. LOTEMAX [Suspect]
     Active Substance: LOTEPREDNOL ETABONATE
     Indication: IRIDOCYCLITIS
     Dosage: UNK
     Route: 065
  2. PRED FORTE [Suspect]
     Active Substance: PREDNISOLONE ACETATE
     Indication: IRIDOCYCLITIS
     Dosage: UNK UNK, TID
     Route: 047
  3. PRED FORTE [Suspect]
     Active Substance: PREDNISOLONE ACETATE
     Dosage: UNK UNK, BID
     Route: 047
  4. PRED FORTE [Suspect]
     Active Substance: PREDNISOLONE ACETATE
     Dosage: UNK, QD
     Route: 047
  5. MAXIDEX [Suspect]
     Active Substance: DEXAMETHASONE
     Dosage: UNK, QID
     Route: 047
  6. AZARGA [Suspect]
     Active Substance: BRINZOLAMIDE\TIMOLOL MALEATE
     Indication: IRIDOCYCLITIS
     Dosage: UNK UNK (BRINZOLAMIDE WAS 10 MG/ML AND TIMOLOL 5 MG/ML), UNK
     Route: 065
  7. VIGAMOX [Suspect]
     Active Substance: MOXIFLOXACIN HYDROCHLORIDE
     Dosage: UNK UNK, TID
     Route: 047
  8. MAXIDEX [Suspect]
     Active Substance: DEXAMETHASONE
     Indication: IRIDOCYCLITIS
     Dosage: UNK, Q3H
     Route: 047
  9. XALATAN [Suspect]
     Active Substance: LATANOPROST
     Indication: IRIDOCYCLITIS
     Dosage: UNK
     Route: 047
  10. VIGAMOX [Suspect]
     Active Substance: MOXIFLOXACIN HYDROCHLORIDE
     Indication: IRIDOCYCLITIS
     Dosage: UNK
     Route: 047
  11. AZARGA [Suspect]
     Active Substance: BRINZOLAMIDE\TIMOLOL MALEATE
     Dosage: UNK UNK (BRINZOLAMIDE WAS 10 MG/ML AND TIMOLOL 5 MG/ML), BID
     Route: 065

REACTIONS (2)
  - Therapeutic product ineffective for unapproved indication [Unknown]
  - Corneal endotheliitis [Unknown]
